FAERS Safety Report 19487307 (Version 1)
Quarter: 2021Q3

REPORT INFORMATION
  Report Type: Report from Study
  Country: US (occurrence: US)
  Receive Date: 20210702
  Receipt Date: 20210702
  Transmission Date: 20211014
  Serious: Yes (Other)
  Sender: FDA-Public Use
  Company Number: US-EMD SERONO-9248013

PATIENT
  Age: 50 Year
  Sex: Male

DRUGS (1)
  1. REBIF [Suspect]
     Active Substance: INTERFERON BETA-1A
     Indication: MULTIPLE SCLEROSIS
     Dosage: REBI?JECT II/MANUAL
     Route: 058
     Dates: start: 20030710

REACTIONS (6)
  - Blood glucose increased [Unknown]
  - Glycosylated haemoglobin increased [Unknown]
  - Left ventricular dysfunction [Unknown]
  - Hypoaesthesia [Unknown]
  - Band sensation [Unknown]
  - Angina pectoris [Unknown]

NARRATIVE: CASE EVENT DATE: 20210501
